FAERS Safety Report 7742507-5 (Version None)
Quarter: 2011Q3

REPORT INFORMATION
  Report Type: 
  Country: None (occurrence: None)
  Receive Date: 20110902
  Receipt Date: 20081216
  Transmission Date: 20111222
  Serious: Yes (Other)
  Sender: FDA-Public Use
  Company Number: 2011SP040070

PATIENT
  Age: 85 Year
  Sex: Female

DRUGS (9)
  1. ACETYLSALICYLIC ACID SRT [Suspect]
     Indication: CARDIAC DISORDER
     Dosage: 200 MG;QD;PO
     Route: 048
     Dates: start: 19971201
  2. ACETYLCYSTEINE [Suspect]
     Indication: COUGH
     Dosage: 200 MG;TID;PO
     Route: 048
     Dates: start: 19980216
  3. FERROUS SULFATE TAB [Suspect]
     Indication: IRON DEFICIENCY ANAEMIA
     Dosage: PO
     Route: 048
     Dates: start: 19971201
  4. ALLOPURINOL [Suspect]
     Indication: LABORATORY TEST
     Dosage: 300 MG;QD;PO
     Route: 048
     Dates: start: 19971201
  5. SEKISAN (CLOPERASTINE FENDIZOATE) (CLOPERASTINE HYDROCHLORIDE) [Suspect]
     Indication: COUGH
     Dosage: 45 ML;QD;PO
     Route: 048
     Dates: start: 19980216
  6. ZOLPIDEM TARTRATE [Suspect]
     Indication: PRODUCT USED FOR UNKNOWN INDICATION
     Dosage: 10 MG;PO
     Route: 048
     Dates: start: 19971201
  7. ZANTAC [Suspect]
     Indication: PRODUCT USED FOR UNKNOWN INDICATION
     Dosage: 300 MG;QD;PO
     Route: 048
     Dates: start: 19971201
  8. FUROSEMIDE [Suspect]
     Indication: CARDIAC DISORDER
     Dosage: 40 MG;QD;PO
     Route: 048
     Dates: start: 19971201
  9. NITROGLYCERIN [Suspect]
     Dosage: 5 MG;QD;TDER
     Route: 062
     Dates: start: 19971201

REACTIONS (1)
  - STEVENS-JOHNSON SYNDROME [None]
